FAERS Safety Report 8826194 (Version 1)
Quarter: 2012Q4

REPORT INFORMATION
  Report Type: 
  Country: DE (occurrence: DE)
  Receive Date: 20121008
  Receipt Date: 20121008
  Transmission Date: 20130627
  Serious: Yes (Death)
  Sender: FDA-Public Use
  Company Number: DE-ELI_LILLY_AND_COMPANY-DE201209007172

PATIENT

DRUGS (11)
  1. OLANZAPINE [Suspect]
     Indication: OBSESSIVE-COMPULSIVE DISORDER
     Dosage: 2.5 mg, qd
     Route: 064
  2. SERTRALINE [Concomitant]
     Indication: DEPRESSION
     Dosage: 50 mg, qd
     Route: 064
  3. SERTRALINE [Concomitant]
     Dosage: 100 mg, qd
     Route: 064
  4. SERTRALINE [Concomitant]
     Dosage: 150 mg, qd
     Route: 064
  5. VENLAFAXINE [Concomitant]
     Indication: DEPRESSION
     Dosage: 75 mg, qd
     Route: 064
  6. VENLAFAXINE [Concomitant]
     Dosage: 350 mg, qd
  7. LITHIUM [Concomitant]
     Indication: OBSESSIVE-COMPULSIVE DISORDER
     Dosage: 225 mg, qd
     Route: 064
  8. LITHIUM [Concomitant]
     Dosage: 450 mg, qd
     Route: 064
  9. LITHIUM [Concomitant]
     Dosage: 675 mg, qd
     Route: 064
  10. LITHIUM [Concomitant]
     Dosage: 900 mg, qd
     Route: 064
  11. FOLSAURE [Concomitant]
     Indication: PROPHYLAXIS OF NEURAL TUBE DEFECT
     Route: 064

REACTIONS (2)
  - Foetal death [Fatal]
  - Foetal exposure during pregnancy [Recovered/Resolved]
